FAERS Safety Report 4682157-0 (Version None)
Quarter: 2005Q2

REPORT INFORMATION
  Report Type: 
  Country: None (occurrence: None)
  Receive Date: 20050603
  Receipt Date: 20050603
  Transmission Date: 20051028
  Serious: Yes (Death)
  Sender: FDA-Public Use
  Company Number: None

PATIENT
  Age: 82 Year
  Sex: Female
  Weight: 65.318 kg

DRUGS (1)
  1. PACERONE [Suspect]
     Indication: DRUG TOXICITY
     Dosage: DAILY    BY MOUTH   ORAL
     Route: 048
     Dates: start: 20041230, end: 20050501

REACTIONS (2)
  - DRUG TOXICITY [None]
  - RESPIRATORY FAILURE [None]
